FAERS Safety Report 12386143 (Version 2)
Quarter: 2016Q2

REPORT INFORMATION
  Report Type: Spontaneous
  Country: SI (occurrence: SI)
  Receive Date: 20160519
  Receipt Date: 20160621
  Transmission Date: 20160815
  Serious: No
  Sender: FDA-Public Use
  Company Number: SI-VIVUS-2016V1000206

PATIENT
  Age: 74 Year
  Sex: Male
  Weight: 98 kg

DRUGS (6)
  1. SPEDRA [Suspect]
     Active Substance: AVANAFIL
     Indication: ERECTILE DYSFUNCTION
     Route: 065
     Dates: start: 20160126, end: 20160209
  2. AMPRIL [Concomitant]
     Indication: HYPERTENSION
     Dates: start: 20100406
  3. MONOSAN [Concomitant]
     Indication: MYOCARDIAL ISCHAEMIA
     Dates: start: 20020608
  4. ASPIRIN. [Concomitant]
     Active Substance: ASPIRIN
     Indication: MYOCARDIAL ISCHAEMIA
     Dates: start: 20010802
  5. NEBILET [Concomitant]
     Active Substance: NEBIVOLOL
     Indication: MYOCARDIAL ISCHAEMIA
     Dates: start: 20060810
  6. NEBILET [Concomitant]
     Active Substance: NEBIVOLOL
     Indication: HYPERTENSION

REACTIONS (1)
  - Dermatitis allergic [Recovered/Resolved]

NARRATIVE: CASE EVENT DATE: 20160209
